FAERS Safety Report 12768107 (Version 1)
Quarter: 2016Q3

REPORT INFORMATION
  Report Type: Spontaneous
  Country: US (occurrence: US)
  Receive Date: 20160921
  Receipt Date: 20160921
  Transmission Date: 20161109
  Serious: No
  Sender: FDA-Public Use
  Company Number: US-BRAINTREE LABORATORIES-150386

PATIENT
  Age: 62 Year
  Sex: Male

DRUGS (1)
  1. SUPREP BOWEL PREP [Suspect]
     Active Substance: MAGNESIUM SULFATE\POTASSIUM SULFATE\SODIUM SULFATE
     Indication: COLONOSCOPY
     Dosage: 2 X 6 OZ BOTTLE
     Route: 048
     Dates: start: 20150923, end: 20150924

REACTIONS (5)
  - Flatulence [None]
  - Anxiety [None]
  - Abdominal distension [None]
  - Nausea [None]
  - Drug effect delayed [None]
